FAERS Safety Report 6231454-6 (Version None)
Quarter: 2009Q2

REPORT INFORMATION
  Report Type: 
  Country: None (occurrence: None)
  Receive Date: 20090612
  Receipt Date: 20090612
  Transmission Date: 20091009
  Serious: Yes (Hospitalization)
  Sender: FDA-Public Use
  Company Number: None

PATIENT
  Sex: Female
  Weight: 72.5755 kg

DRUGS (2)
  1. ALIMTA [Suspect]
     Indication: SQUAMOUS CELL CARCINOMA
     Dosage: 500
     Dates: start: 20090114, end: 20090527
  2. AVASTIN [Suspect]
     Indication: SQUAMOUS CELL CARCINOMA
     Dosage: 15MG/KG
     Dates: start: 20090114, end: 20090527

REACTIONS (4)
  - HAEMOPTYSIS [None]
  - NEUTROPHIL COUNT ABNORMAL [None]
  - PLEURAL EFFUSION [None]
  - PNEUMONIA [None]
